FAERS Safety Report 7800017-0 (Version None)
Quarter: 2011Q4

REPORT INFORMATION
  Report Type: 
  Country: None (occurrence: None)
  Receive Date: 20111006
  Receipt Date: 20110516
  Transmission Date: 20120403
  Serious: No
  Sender: FDA-Public Use
  Company Number: US-BAYER-2011-036923

PATIENT
  Age: 29 Year
  Sex: Female

DRUGS (1)
  1. MIRENA [Suspect]
     Indication: CONTRACEPTION
     Dosage: 20 MCG/24HR, CONT
     Route: 015
     Dates: start: 20110316, end: 20110427

REACTIONS (8)
  - MUSCLE SPASMS [None]
  - DERMAL CYST [None]
  - PARAESTHESIA [None]
  - SKIN DISCOLOURATION [None]
  - POST PROCEDURAL HAEMORRHAGE [None]
  - HEADACHE [None]
  - PAIN [None]
  - HYPOAESTHESIA [None]
